FAERS Safety Report 5151131-2 (Version None)
Quarter: 2006Q4

REPORT INFORMATION
  Report Type: 
  Country: None (occurrence: None)
  Receive Date: 20061114
  Receipt Date: 20061114
  Transmission Date: 20070319
  Serious: Yes (Other)
  Sender: FDA-Public Use
  Company Number: None

PATIENT
  Age: 31 Year
  Sex: Female
  Weight: 53.5244 kg

DRUGS (1)
  1. EQUATE PAIN RELIEVER 500 MG PERRIGO, ALLEGAN, MI [Suspect]
     Indication: HEADACHE
     Dosage: 2 CAPLETS 2 TIMES DAY PO
     Route: 048
     Dates: start: 20061104, end: 20061106

REACTIONS (5)
  - ABDOMINAL PAIN UPPER [None]
  - HAEMOPTYSIS [None]
  - NAUSEA [None]
  - PHARMACEUTICAL PRODUCT COMPLAINT [None]
  - POOR QUALITY DRUG ADMINISTERED [None]
